FAERS Safety Report 17082219 (Version 2)
Quarter: 2024Q4

REPORT INFORMATION
  Report Type: Spontaneous
  Country: TR (occurrence: TR)
  Receive Date: 20191127
  Receipt Date: 20241115
  Transmission Date: 20250115
  Serious: Yes (Other)
  Sender: NOVARTIS
  Company Number: TR-NOVARTISPH-PHHY2019TR163098

PATIENT
  Age: 34 Year
  Sex: Male

DRUGS (2)
  1. TEGRETOL [Suspect]
     Active Substance: CARBAMAZEPINE
     Indication: Epilepsy
     Dosage: UNK (STARTED 9-10 YEARS BEFORE THE INITIAL REPORTING DATE) (ENDED ON 8 MONTHS BEFORE THE INITIAL REP
     Route: 065
  2. TEGRETOL [Suspect]
     Active Substance: CARBAMAZEPINE
     Dosage: UNK (STRENGTH: 300 MG)
     Route: 065

REACTIONS (4)
  - Drug intolerance [Unknown]
  - Seizure [Recovering/Resolving]
  - Product supply issue [Unknown]
  - Drug ineffective [Unknown]
